FAERS Safety Report 13096903 (Version 1)
Quarter: 2017Q1

REPORT INFORMATION
  Report Type: Spontaneous
  Country: US (occurrence: US)
  Receive Date: 20170106
  Receipt Date: 20170106
  Transmission Date: 20170428
  Serious: Yes (Disabling)
  Sender: FDA-Public Use
  Company Number: None

PATIENT
  Age: 44 Year
  Sex: Female
  Weight: 63 kg

DRUGS (10)
  1. FISH OIL [Concomitant]
     Active Substance: FISH OIL
  2. CIPRO [Suspect]
     Active Substance: CIPROFLOXACIN HYDROCHLORIDE
     Indication: URINARY TRACT INFECTION
     Dates: start: 20080512, end: 20140715
  3. LEVAQUIN [Suspect]
     Active Substance: LEVOFLOXACIN
  4. METFORMIN [Concomitant]
     Active Substance: METFORMIN HYDROCHLORIDE
  5. CELEXA [Concomitant]
     Active Substance: CITALOPRAM HYDROBROMIDE
  6. MULTI VITAMINS [Concomitant]
     Active Substance: VITAMINS
  7. AVELOX [Suspect]
     Active Substance: MOXIFLOXACIN HYDROCHLORIDE
  8. CLARITIN [Suspect]
     Active Substance: LORATADINE
  9. ALLERGY NASAL SPRAY [Concomitant]
  10. PROBIOTICS [Concomitant]
     Active Substance: PROBIOTICS NOS

REACTIONS (11)
  - Memory impairment [None]
  - Ehlers-Danlos syndrome [None]
  - Food intolerance [None]
  - Gastrointestinal disorder [None]
  - Pain [None]
  - Insomnia [None]
  - Rash [None]
  - Fatigue [None]
  - Somnambulism [None]
  - Gastrointestinal inflammation [None]
  - Sleep talking [None]

NARRATIVE: CASE EVENT DATE: 20140715
